FAERS Safety Report 15794043 (Version 1)
Quarter: 2019Q1

REPORT INFORMATION
  Report Type: Spontaneous
  Country: US (occurrence: US)
  Receive Date: 20190106
  Receipt Date: 20190106
  Transmission Date: 20190417
  Serious: Yes (Other)
  Sender: FDA-Public Use
  Company Number: None

PATIENT
  Age: 55 Year
  Sex: Female

DRUGS (11)
  1. CELECOXIB. [Concomitant]
     Active Substance: CELECOXIB
  2. DICLOFENAC 1% GEL [Concomitant]
     Active Substance: DICLOFENAC
  3. HYDROCODONE-ACETAMINOPHEN [Concomitant]
     Active Substance: ACETAMINOPHEN\HYDROCODONE
  4. LEUCOVORIN. [Concomitant]
     Active Substance: LEUCOVORIN
  5. ACTEMRA [Suspect]
     Active Substance: TOCILIZUMAB
     Indication: RHEUMATOID ARTHRITIS
     Dosage: ?          OTHER FREQUENCY:EVERY 2 WEEKS;?
     Route: 058
     Dates: start: 20150211, end: 20181208
  6. DOCUSATE [Concomitant]
     Active Substance: DOCUSATE
  7. FOLIC ACID. [Concomitant]
     Active Substance: FOLIC ACID
  8. CALCIUM CARBONATE - CHOLECALCIFEROL [Concomitant]
  9. METHOTREXATE. [Concomitant]
     Active Substance: METHOTREXATE
  10. NABUMETONE. [Concomitant]
     Active Substance: NABUMETONE
  11. OMEPRAZOLE. [Concomitant]
     Active Substance: OMEPRAZOLE

REACTIONS (1)
  - Herpes zoster [None]

NARRATIVE: CASE EVENT DATE: 20181208
